FAERS Safety Report 12311291 (Version 2)
Quarter: 2017Q2

REPORT INFORMATION
  Report Type: Spontaneous
  Country: ES (occurrence: ES)
  Receive Date: 20160427
  Receipt Date: 20170516
  Transmission Date: 20170830
  Serious: Yes (Hospitalization)
  Sender: FDA-Public Use
  Company Number: ES-NOVOPROD-486758

PATIENT
  Age: 60 Year
  Sex: Female
  Weight: 98 kg

DRUGS (22)
  1. FUROSEMIDE. [Concomitant]
     Active Substance: FUROSEMIDE
     Indication: HYPERTENSION
     Dosage: UNK
     Dates: start: 2014
  2. AMOXYCILLIN TRIHYDRATE [Concomitant]
     Indication: VIRAL UPPER RESPIRATORY TRACT INFECTION
     Dosage: UNK
     Dates: start: 20160203, end: 20160210
  3. ACETYLCYSTEINE. [Concomitant]
     Active Substance: ACETYLCYSTEINE
     Indication: VIRAL UPPER RESPIRATORY TRACT INFECTION
     Dosage: UNK
     Dates: start: 20160203, end: 20160210
  4. INSULIN GLARGINE [Suspect]
     Active Substance: INSULIN GLARGINE
     Dosage: 38 IU, QD (AT NIGHT)
     Route: 065
     Dates: start: 2011
  5. LIRAGLUTIDE [Concomitant]
     Active Substance: LIRAGLUTIDE
     Indication: TYPE 2 DIABETES MELLITUS
     Dosage: 1.2 MG, QD
     Dates: start: 201502
  6. LORATADINE. [Concomitant]
     Active Substance: LORATADINE
     Indication: PRURITUS
     Dosage: UNK
     Dates: start: 2013
  7. FLUTICASONE PROPIONATE. [Concomitant]
     Active Substance: FLUTICASONE PROPIONATE
     Indication: ASTHMA
     Dosage: UNK
     Dates: start: 2014
  8. INSULIN ASPART [Suspect]
     Active Substance: INSULIN ASPART
     Indication: TYPE 2 DIABETES MELLITUS
     Dosage: 2 IU, SINGLE
     Route: 065
     Dates: start: 20160226, end: 20160226
  9. ACETYLSALICYLIC ACID [Concomitant]
     Active Substance: ASPIRIN
     Indication: CARDIOVASCULAR EVENT PROPHYLAXIS
     Dosage: UNK
     Dates: start: 2010
  10. ATORVASTATIN [Concomitant]
     Active Substance: ATORVASTATIN
     Indication: DYSLIPIDAEMIA
     Dosage: UNK
     Dates: start: 2013
  11. INSULIN ASPART [Suspect]
     Active Substance: INSULIN ASPART
     Dosage: 08 U, BID (0-1-1)
     Route: 065
     Dates: start: 2011
  12. TRAMADOL. [Concomitant]
     Active Substance: TRAMADOL
     Indication: PAIN PROPHYLAXIS
     Dosage: UNK
     Dates: start: 201502
  13. HYDROCHLOROTHIAZIDE. [Concomitant]
     Active Substance: HYDROCHLOROTHIAZIDE
     Indication: HYPERTENSION
     Dosage: UNK
     Dates: start: 2010
  14. ESOMEPRAZOLE [Concomitant]
     Active Substance: ESOMEPRAZOLE
     Indication: PROPHYLAXIS
     Dosage: UNK
     Dates: start: 2012
  15. SALMETEROL XINAFOATE [Concomitant]
     Active Substance: SALMETEROL XINAFOATE
     Indication: ASTHMA
     Dosage: UNK
  16. INSULIN GLARGINE [Suspect]
     Active Substance: INSULIN GLARGINE
     Indication: TYPE 2 DIABETES MELLITUS
     Dosage: 300 IU, SINGLE
     Route: 065
     Dates: start: 20160226, end: 20160226
  17. BOCOCIZUMAB [Suspect]
     Active Substance: BOCOCIZUMAB
     Indication: CARDIOVASCULAR DISORDER
     Dosage: 150 MG EVERY 2 WEEKS
     Route: 058
     Dates: start: 20150812, end: 20161102
  18. LEVOSULPIRIDE [Concomitant]
     Active Substance: LEVOSULPIRIDE
     Indication: PROPHYLAXIS
     Dosage: UNK
     Dates: start: 2013
  19. PARACETAMOL [Concomitant]
     Active Substance: ACETAMINOPHEN
     Indication: PAIN PROPHYLAXIS
     Dosage: UNK
     Dates: start: 201502
  20. PAROXETINE HYDROCHLORIDE. [Concomitant]
     Active Substance: PAROXETINE HYDROCHLORIDE
     Indication: DEPRESSION
     Dosage: UNK
     Dates: start: 2010
  21. CLORAZEPATE DIPOTASSIUM. [Concomitant]
     Active Substance: CLORAZEPATE DIPOTASSIUM
     Indication: DEPRESSION
     Dosage: UNK
     Dates: start: 2013
  22. EZETIMIBE. [Concomitant]
     Active Substance: EZETIMIBE
     Indication: DYSLIPIDAEMIA
     Dosage: UNK
     Dates: start: 201501

REACTIONS (3)
  - Suicide attempt [Unknown]
  - Hypoglycaemic coma [Recovered/Resolved]
  - Overdose [Unknown]

NARRATIVE: CASE EVENT DATE: 20160226
